FAERS Safety Report 18109750 (Version 2)
Quarter: 2020Q3

REPORT INFORMATION
  Report Type: Spontaneous
  Country: DE (occurrence: DE)
  Receive Date: 20200804
  Receipt Date: 20200805
  Transmission Date: 20201103
  Serious: Yes (Disabling)
  Sender: FDA-Public Use
  Company Number: DE-PFIZER INC-2020144669

PATIENT
  Age: 91 Year
  Sex: Female
  Weight: 120 kg

DRUGS (6)
  1. DELIX (RAMIPRIL) [Suspect]
     Active Substance: RAMIPRIL
     Dosage: 1 DF, QD (0.5 TWICE DAILY (ALSO REPORTED AS: 1/2 ? 1/2)) (FOR 30 YEARS)
     Route: 065
     Dates: start: 1990
  2. TRIMBOW [Suspect]
     Active Substance: BECLOMETHASONE DIPROPIONATE\FORMOTEROL FUMARATE\GLYCOPYRROLATE
     Dosage: UNK, 1X/DAY (2 X QD(FOR 2 YEARS))
     Route: 065
     Dates: start: 2018
  3. AERIUS (DESLORATADINE) [Suspect]
     Active Substance: DESLORATADINE
     Dosage: UNK
     Route: 048
     Dates: end: 20200125
  4. TRIMBOW [Concomitant]
     Active Substance: BECLOMETHASONE DIPROPIONATE\FORMOTEROL FUMARATE\GLYCOPYRROLATE
     Dosage: UNK UNK, BID (TWICE DAILY) (ONCE IN 12 HOURS)
     Route: 065
     Dates: start: 2018
  5. LIXIANA [Suspect]
     Active Substance: EDOXABAN TOSYLATE
     Dosage: 1 DF, QD
     Route: 065
     Dates: start: 201907
  6. TRIMBOW [Concomitant]
     Active Substance: BECLOMETHASONE DIPROPIONATE\FORMOTEROL FUMARATE\GLYCOPYRROLATE
     Dosage: 2 DF, QD TWICE DAILY (FOR 2 YEARS)
     Route: 065
     Dates: start: 2018

REACTIONS (3)
  - Pallor [Recovered/Resolved]
  - Disorientation [Recovered/Resolved]
  - Hyperhidrosis [Recovered/Resolved]

NARRATIVE: CASE EVENT DATE: 20200125
